FAERS Safety Report 4886183-8 (Version None)
Quarter: 2006Q1

REPORT INFORMATION
  Report Type: 
  Country: None (occurrence: None)
  Receive Date: 20060120
  Receipt Date: 20060113
  Transmission Date: 20060701
  Serious: Yes (Life-Threatening)
  Sender: FDA-Public Use
  Company Number: DE-GLAXOSMITHKLINE-B0406945A

PATIENT
  Age: 51 Year
  Sex: Male

DRUGS (7)
  1. FONDAPARINUX SODIUM [Suspect]
     Indication: ACUTE MYOCARDIAL INFARCTION
     Dosage: 2.5MG PER DAY
     Route: 058
  2. ASPIRIN [Concomitant]
  3. CLOPIDOGREL [Concomitant]
  4. BISOPROLOL [Concomitant]
  5. CAPTOPRIL [Concomitant]
  6. ATORVASTATIN CALCIUM [Concomitant]
  7. PANTOPRAZOLE [Concomitant]

REACTIONS (2)
  - CORONARY ARTERY OCCLUSION [None]
  - CORONARY ARTERY THROMBOSIS [None]
